FAERS Safety Report 7380407-3 (Version None)
Quarter: 2011Q1

REPORT INFORMATION
  Report Type: 
  Country: None (occurrence: None)
  Receive Date: 20110329
  Receipt Date: 20110328
  Transmission Date: 20110831
  Serious: Yes (Hospitalization)
  Sender: FDA-Public Use
  Company Number: ES-ROCHE-759619

PATIENT
  Sex: Female
  Weight: 54 kg

DRUGS (6)
  1. LORAZEPAM [Concomitant]
     Dosage: DOSE: 1, FREQUENCY: DAILY (AT NIGHT)
  2. ROACTEMRA [Suspect]
     Indication: RHEUMATOID ARTHRITIS
     Dosage: DOSE: 428
     Route: 042
     Dates: start: 20101214, end: 20110111
  3. DACORTIN [Concomitant]
     Indication: RHEUMATOID ARTHRITIS
     Route: 048
  4. MASTICAL D [Concomitant]
  5. GELOCATIL [Concomitant]
     Dosage: FREQUENCY: AD LIBITUM
  6. DOLQUINE [Concomitant]

REACTIONS (4)
  - GASTROENTERITIS [None]
  - PYREXIA [None]
  - LEUKOPENIA [None]
  - LUNG INFILTRATION [None]
